FAERS Safety Report 5585618-5 (Version None)
Quarter: 2008Q1

REPORT INFORMATION
  Report Type: 
  Country: None (occurrence: None)
  Receive Date: 20080109
  Receipt Date: 20080104
  Transmission Date: 20080703
  Serious: Yes (Disabling)
  Sender: FDA-Public Use
  Company Number: US-MERCK-0801USA00540

PATIENT
  Age: 57 Year
  Sex: Female

DRUGS (7)
  1. FOSAMAX [Suspect]
     Indication: OSTEOPOROSIS
     Route: 048
  2. FOSAMAX [Suspect]
     Route: 048
     Dates: start: 20071001
  3. ESTRACE [Concomitant]
     Route: 065
  4. VIVELLE-DOT [Concomitant]
     Route: 065
  5. LUNESTA [Concomitant]
     Route: 065
  6. LORTAB [Concomitant]
     Route: 065
  7. FIORICET TABLETS [Concomitant]
     Route: 065

REACTIONS (4)
  - BONE DISORDER [None]
  - BONE MARROW DISORDER [None]
  - BONE PAIN [None]
  - IMPAIRED HEALING [None]
